FAERS Safety Report 8163315-X (Version None)
Quarter: 2012Q1

REPORT INFORMATION
  Report Type: 
  Country: None (occurrence: None)
  Receive Date: 20120224
  Receipt Date: 20110809
  Transmission Date: 20120608
  Serious: No
  Sender: FDA-Public Use
  Company Number: US-PFIZER INC-K201100989

PATIENT
  Age: 44 Year
  Sex: Male

DRUGS (2)
  1. LISINOPRIL [Concomitant]
     Indication: HYPERTENSION
     Dosage: UNK
  2. FLECTOR [Suspect]
     Indication: BACK PAIN
     Dosage: 1 PATCH, QD FOR 8-12 HOURS
     Route: 061
     Dates: start: 20110501, end: 20110601

REACTIONS (7)
  - BLOOD PRESSURE INCREASED [None]
  - NAUSEA [None]
  - VOMITING [None]
  - CHEST PAIN [None]
  - DYSPNOEA [None]
  - DIARRHOEA [None]
  - DIZZINESS [None]
